FAERS Safety Report 9887720 (Version 1)
Quarter: 2013Q4

REPORT INFORMATION
  Report Type: Spontaneous
  Country: US (occurrence: None)
  Receive Date: 20131223
  Receipt Date: 20131223
  Transmission Date: 20140711
  Serious: No
  Sender: FDA-Public Use
  Company Number: 219409LEO

PATIENT
  Age: 59 Year
  Sex: Male

DRUGS (1)
  1. PICATO (0.015%, GEL) [Suspect]
     Indication: ACTINIC KERATOSIS
     Dates: start: 20121028, end: 20121030

REACTIONS (6)
  - Erythema [None]
  - Scab [None]
  - Skin exfoliation [None]
  - Pruritus [None]
  - Swelling [None]
  - Headache [None]
